FAERS Safety Report 6221635-X (Version None)
Quarter: 2009Q2

REPORT INFORMATION
  Report Type: 
  Country: None (occurrence: None)
  Receive Date: 20090608
  Receipt Date: 20090526
  Transmission Date: 20091009
  Serious: Yes (Hospitalization)
  Sender: FDA-Public Use
  Company Number: FR-WYE-H09535609

PATIENT
  Age: 62 Year
  Sex: Male

DRUGS (10)
  1. PANTOPRAZOLE SODIUM [Suspect]
     Dosage: 20 MG 1X PER 1 DAY; ORAL
     Route: 048
     Dates: start: 20070501, end: 20070601
  2. EUPRESSYL (URAPIDIL) [Concomitant]
  3. PRAVASTATIN SODIUM [Concomitant]
  4. NICARDIPINE HCL [Concomitant]
  5. LASIX [Concomitant]
  6. HYPERIUM (RILMENIDINE) [Concomitant]
  7. LYRICA [Concomitant]
  8. PLAVIX [Concomitant]
  9. NOVOMIX (INSULIN ASPART) [Concomitant]
  10. NOVOLOG [Concomitant]

REACTIONS (3)
  - NEPHRITIS ALLERGIC [None]
  - RENAL ARTERY STENOSIS [None]
  - RENAL FAILURE ACUTE [None]
